FAERS Safety Report 13093058 (Version 1)
Quarter: 2017Q1

REPORT INFORMATION
  Report Type: Spontaneous
  Country: CO (occurrence: CO)
  Receive Date: 20170106
  Receipt Date: 20170106
  Transmission Date: 20170428
  Serious: No
  Sender: FDA-Public Use
  Company Number: CO-SA-2017SA001162

PATIENT
  Age: 30 Year
  Sex: Female

DRUGS (5)
  1. ARAVA [Suspect]
     Active Substance: LEFLUNOMIDE
     Indication: ARTHRITIS
     Route: 048
     Dates: start: 201506, end: 20161215
  2. CHLOROQUINE. [Concomitant]
     Active Substance: CHLOROQUINE
     Route: 048
     Dates: start: 201609, end: 201612
  3. SULFASALAZINE. [Concomitant]
     Active Substance: SULFASALAZINE
     Route: 048
     Dates: start: 201506
  4. PREDNISOLONE. [Concomitant]
     Active Substance: PREDNISOLONE
     Route: 048
     Dates: start: 2001
  5. CALCIUM PHOSP DI W/FERR FUM/VIT.B/VIT.C/VIT.D [Concomitant]
     Route: 048
     Dates: start: 2006

REACTIONS (1)
  - Exposure during pregnancy [Unknown]
